FAERS Safety Report 16701847 (Version 1)
Quarter: 2019Q3

REPORT INFORMATION
  Report Type: Spontaneous
  Country: IT (occurrence: IT)
  Receive Date: 20190814
  Receipt Date: 20190814
  Transmission Date: 20191004
  Serious: Yes (Death)
  Sender: FDA-Public Use
  Company Number: IT-TEVA-2019-IT-1090621

PATIENT
  Age: 80 Year
  Sex: Female

DRUGS (4)
  1. OMEPRAZOLE. [Interacting]
     Active Substance: OMEPRAZOLE
     Route: 065
  2. KETOROLAC [Interacting]
     Active Substance: KETOROLAC TROMETHAMINE
     Route: 065
  3. DICLOFENAC [Suspect]
     Active Substance: DICLOFENAC
     Route: 065
  4. WARFARIN [Interacting]
     Active Substance: WARFARIN
     Indication: ATRIAL FIBRILLATION
     Route: 048

REACTIONS (2)
  - Labelled drug-drug interaction medication error [Fatal]
  - Cerebral haemorrhage [Fatal]
